FAERS Safety Report 6326588-1 (Version None)
Quarter: 2009Q3

REPORT INFORMATION
  Report Type: 
  Country: None (occurrence: None)
  Receive Date: 20090825
  Receipt Date: 20090820
  Transmission Date: 20100115
  Serious: Yes (Hospitalization)
  Sender: FDA-Public Use
  Company Number: FR-PURDUE-GBR-2009-0005508

PATIENT
  Sex: Male

DRUGS (19)
  1. OXYCONTIN [Suspect]
     Indication: PAIN
     Dosage: 100 MG, BID
     Route: 048
     Dates: start: 20081201
  2. OXYNORM CAPSULES 10 MG [Suspect]
     Indication: PAIN
     Dosage: 10 MG, BID
     Route: 048
     Dates: start: 20081201
  3. LIDOCAINE [Suspect]
     Indication: PAIN
     Dosage: 700 MG, BID
     Route: 003
     Dates: start: 20081201, end: 20090701
  4. CELLCEPT [Concomitant]
     Dosage: 2 G, DAILY
     Route: 065
  5. CORTANCYL [Concomitant]
     Dosage: 40 MG, DAILY
     Route: 065
  6. DIFFU K [Concomitant]
     Route: 065
  7. CALCIDOSE                          /00108001/ [Concomitant]
     Route: 065
  8. INEXIUM                            /01479302/ [Concomitant]
     Dosage: 40 MG, DAILY
     Route: 065
  9. TAHOR [Concomitant]
     Dosage: 80 MG, DAILY
     Route: 065
  10. ALDACTONE [Concomitant]
     Route: 065
  11. APROVEL [Concomitant]
     Route: 065
  12. LOVENOX [Concomitant]
     Route: 065
  13. NOVORAPID [Concomitant]
     Route: 065
  14. LANTUS [Concomitant]
     Route: 065
  15. SERETIDE                           /01420901/ [Concomitant]
     Route: 065
  16. NASONEX [Concomitant]
     Route: 065
  17. IPRATROPIUM [Concomitant]
     Route: 065
  18. ZITHROMAX [Concomitant]
     Route: 065
  19. NEURONTIN [Concomitant]
     Dosage: 800 MG, DAILY
     Route: 065

REACTIONS (2)
  - DYSKINESIA [None]
  - FORMICATION [None]
